FAERS Safety Report 16879569 (Version 3)
Quarter: 2020Q1

REPORT INFORMATION
  Report Type: Spontaneous
  Country: JP (occurrence: JP)
  Receive Date: 20191003
  Receipt Date: 20200313
  Transmission Date: 20200409
  Serious: Yes (Hospitalization)
  Sender: FDA-Public Use
  Company Number: JP-ASTRAZENECA-2019SF36311

PATIENT
  Age: 27773 Day
  Sex: Female
  Weight: 59 kg

DRUGS (10)
  1. UNIPHYL LA [Concomitant]
     Active Substance: THEOPHYLLINE ANHYDROUS
     Route: 048
     Dates: end: 20190916
  2. MECOBALAMIN [Concomitant]
     Active Substance: METHYLCOBALAMIN
     Route: 048
     Dates: end: 20190916
  3. SIMVASTATIN. [Concomitant]
     Active Substance: SIMVASTATIN
     Indication: HYPERLIPIDAEMIA
     Route: 048
     Dates: end: 20190916
  4. NEXIUM [Suspect]
     Active Substance: ESOMEPRAZOLE MAGNESIUM
     Indication: COUGH
     Route: 048
     Dates: start: 20190909, end: 20190916
  5. BUFFERIN [Suspect]
     Active Substance: ASPIRIN
     Dosage: DOSE UNKNOWN
     Route: 048
     Dates: start: 20190915, end: 20190915
  6. FLUTIFORM [Concomitant]
     Active Substance: FLUTICASONE PROPIONATE\FORMOTEROL FUMARATE
     Dosage: DOSE UNKNOWN
     Route: 055
     Dates: end: 20190916
  7. TORASEMIDE [Concomitant]
     Active Substance: TORSEMIDE
     Route: 048
     Dates: end: 20190916
  8. RELVAR [Concomitant]
     Active Substance: FLUTICASONE FUROATE\VILANTEROL TRIFENATATE
     Dosage: DOSE UNKNOWN
     Route: 055
     Dates: end: 20190916
  9. TEPRENONE [Suspect]
     Active Substance: TEPRENONE
     Route: 048
     Dates: start: 20190909, end: 20190916
  10. CARVEDILOL. [Concomitant]
     Active Substance: CARVEDILOL
     Indication: HYPERTENSION
     Route: 048
     Dates: end: 20190916

REACTIONS (2)
  - Drug eruption [Recovered/Resolved]
  - Off label use [Unknown]

NARRATIVE: CASE EVENT DATE: 20190915
